FAERS Safety Report 7372714-5 (Version None)
Quarter: 2011Q1

REPORT INFORMATION
  Report Type: 
  Country: None (occurrence: None)
  Receive Date: 20110315
  Receipt Date: 20110301
  Transmission Date: 20110831
  Serious: Yes (Death, Hospitalization)
  Sender: FDA-Public Use
  Company Number: 2009-04629

PATIENT
  Age: 85 Year
  Sex: Female
  Weight: 78 kg

DRUGS (2)
  1. DEXAMETHASONE TAB [Suspect]
     Indication: MULTIPLE MYELOMA
     Dosage: 20 MG, ORAL
     Route: 048
     Dates: start: 20091020, end: 20091031
  2. VELCADE [Suspect]
     Indication: MULTIPLE MYELOMA
     Dosage: 1.3 MG/M2, INTRAVENOUS
     Route: 042
     Dates: start: 20091020, end: 20091030

REACTIONS (1)
  - MYOCARDIAL INFARCTION [None]
